FAERS Safety Report 23179243 (Version 2)
Quarter: 2025Q1

REPORT INFORMATION
  Report Type: Spontaneous
  Country: US (occurrence: US)
  Receive Date: 20231113
  Receipt Date: 20250225
  Transmission Date: 20250409
  Serious: No
  Sender: PFIZER
  Company Number: US-PFIZER INC-202201273421

PATIENT
  Age: 60 Year
  Sex: Female

DRUGS (11)
  1. XELJANZ [Suspect]
     Active Substance: TOFACITINIB CITRATE
     Indication: Rheumatoid arthritis
     Dosage: 5 MG, 2X/DAY
     Route: 048
     Dates: end: 202204
  2. RASUVO [Concomitant]
     Active Substance: METHOTREXATE SODIUM
  3. ALPRAZOLAM [Concomitant]
     Active Substance: ALPRAZOLAM
  4. METOPROLOL SUCCINATE [Concomitant]
     Active Substance: METOPROLOL SUCCINATE
  5. FOLIC ACID [Concomitant]
     Active Substance: FOLIC ACID
  6. MIRTAZAPINE [Concomitant]
     Active Substance: MIRTAZAPINE
  7. SIMVASTATIN [Concomitant]
     Active Substance: SIMVASTATIN
  8. IBUPROFEN [Concomitant]
     Active Substance: IBUPROFEN
  9. SERTRALINE HYDROCHLORIDE [Concomitant]
     Active Substance: SERTRALINE HYDROCHLORIDE
  10. HYDROCHLOROTHIAZIDE [Concomitant]
     Active Substance: HYDROCHLOROTHIAZIDE
  11. OLANZAPINE [Concomitant]
     Active Substance: OLANZAPINE

REACTIONS (2)
  - Peripheral swelling [Unknown]
  - Illness [Unknown]
